FAERS Safety Report 19095676 (Version 2)
Quarter: 2021Q2

REPORT INFORMATION
  Report Type: Report from Study
  Country: None (occurrence: US)
  Receive Date: 20210406
  Receipt Date: 20210409
  Transmission Date: 20210717
  Serious: Yes (Hospitalization, Other)
  Sender: FDA-Public Use
  Company Number: US-ABBVIE-21K-163-3843445-00

PATIENT
  Age: 87 Year
  Sex: Female

DRUGS (3)
  1. DUOPA [Suspect]
     Active Substance: CARBIDOPA\LEVODOPA
     Indication: PRODUCT USED FOR UNKNOWN INDICATION
     Route: 050
     Dates: start: 20210329
  2. KEFLEX [Concomitant]
     Active Substance: CEPHALEXIN
     Indication: STOMA SITE ERYTHEMA
  3. DUOPA [Suspect]
     Active Substance: CARBIDOPA\LEVODOPA

REACTIONS (11)
  - Stoma site discharge [Unknown]
  - Dyspnoea [Unknown]
  - Parkinson^s disease [Unknown]
  - Fibrin D dimer increased [Unknown]
  - Surgery [Unknown]
  - Asthenia [Unknown]
  - Fatigue [Unknown]
  - Fatigue [Unknown]
  - General physical health deterioration [Unknown]
  - Unevaluable event [Unknown]
  - Stoma site erythema [Unknown]

NARRATIVE: CASE EVENT DATE: 202103
